FAERS Safety Report 17108746 (Version 2)
Quarter: 2020Q1

REPORT INFORMATION
  Report Type: Spontaneous
  Country: PL (occurrence: PL)
  Receive Date: 20191203
  Receipt Date: 20200107
  Transmission Date: 20200409
  Serious: Yes (Death, Life-Threatening, Other)
  Sender: FDA-Public Use
  Company Number: PL-PFIZER INC-2019519458

PATIENT
  Age: 51 Year
  Sex: Female

DRUGS (8)
  1. CAPECITABINE. [Suspect]
     Active Substance: CAPECITABINE
     Indication: PRODUCT USED FOR UNKNOWN INDICATION
     Dosage: UNK
     Route: 065
  2. LETROZOLE. [Interacting]
     Active Substance: LETROZOLE
     Indication: HORMONE THERAPY
     Dosage: UNK
     Route: 065
  3. PACLITAXEL. [Suspect]
     Active Substance: PACLITAXEL
     Dosage: UNK EVERY WEEK
     Route: 065
     Dates: start: 201607, end: 201707
  4. LETROZOLE. [Interacting]
     Active Substance: LETROZOLE
     Indication: BREAST CANCER
  5. VINORELBINE [Interacting]
     Active Substance: VINORELBINE TARTRATE
     Dosage: UNK
     Route: 065
     Dates: start: 201710, end: 201804
  6. TAMOXIFEN [Interacting]
     Active Substance: TAMOXIFEN
     Indication: BREAST CANCER
     Dosage: UNK
     Route: 065
  7. TAMOXIFEN [Interacting]
     Active Substance: TAMOXIFEN
     Indication: HORMONE THERAPY
  8. IMATINIB. [Interacting]
     Active Substance: IMATINIB MESYLATE
     Indication: CHRONIC MYELOID LEUKAEMIA
     Dosage: UNK
     Route: 065
     Dates: start: 201601, end: 201707

REACTIONS (3)
  - Drug interaction [Fatal]
  - Neoplasm progression [Fatal]
  - Polyneuropathy [Fatal]

NARRATIVE: CASE EVENT DATE: 201601
